FAERS Safety Report 5066440-5 (Version None)
Quarter: 2006Q3

REPORT INFORMATION
  Report Type: 
  Country: None (occurrence: None)
  Receive Date: 20060717
  Receipt Date: 20050921
  Transmission Date: 20061208
  Serious: Yes (Other)
  Sender: FDA-Public Use
  Company Number: SGB1-2005-00426

PATIENT
  Age: 77 Year
  Sex: Male

DRUGS (2)
  1. ANAGRELIDE HCL [Suspect]
  2. ROXITHROMYCIN(ROXITHROMYCIN) [Suspect]

REACTIONS (2)
  - DIZZINESS [None]
  - TACHYCARDIA [None]
